FAERS Safety Report 16391172 (Version 1)
Quarter: 2019Q2

REPORT INFORMATION
  Report Type: Report from Study
  Country: None (occurrence: US)
  Receive Date: 20190604
  Receipt Date: 20190604
  Transmission Date: 20190711
  Serious: Yes (Hospitalization, Other)
  Sender: FDA-Public Use
  Company Number: US-ABBVIE-19K-163-2689383-00

PATIENT
  Sex: Female

DRUGS (14)
  1. VENCLEXTA [Suspect]
     Active Substance: VENETOCLAX
     Dosage: CYCLE OF 14 DAYS ON, THEN 21 DAYS OFF.
     Route: 048
     Dates: start: 20190513
  2. ACYCLOVIR. [Concomitant]
     Active Substance: ACYCLOVIR
     Indication: PRODUCT USED FOR UNKNOWN INDICATION
  3. POTASSIUM [Concomitant]
     Active Substance: POTASSIUM
     Indication: BLOOD POTASSIUM
  4. PREDNISONE. [Concomitant]
     Active Substance: PREDNISONE
     Indication: PRODUCT USED FOR UNKNOWN INDICATION
  5. REMERON [Concomitant]
     Active Substance: MIRTAZAPINE
     Indication: ANXIETY
  6. REMERON [Concomitant]
     Active Substance: MIRTAZAPINE
     Indication: APPETITE DISORDER
  7. ACYCLOVIR. [Concomitant]
     Active Substance: ACYCLOVIR
     Indication: PRODUCT USED FOR UNKNOWN INDICATION
  8. VIDAZA [Concomitant]
     Active Substance: AZACITIDINE
     Indication: MYELODYSPLASTIC SYNDROME
     Dosage: FIRST 5 DAYS OF EA 14 DAYS ON VENCLEXTA
     Route: 050
     Dates: start: 20181209
  9. VENCLEXTA [Suspect]
     Active Substance: VENETOCLAX
     Dosage: CYCLE OF 14 DAYS ON, THEN 21 DAYS OFF.
     Route: 048
     Dates: start: 20190513
  10. LEVOFLOXACIN. [Concomitant]
     Active Substance: LEVOFLOXACIN
     Indication: PRODUCT USED FOR UNKNOWN INDICATION
  11. REMERON [Concomitant]
     Active Substance: MIRTAZAPINE
     Indication: ANXIETY
  12. VENCLEXTA [Suspect]
     Active Substance: VENETOCLAX
     Indication: MYELODYSPLASTIC SYNDROME
     Dosage: CYCLE OF 14 DAYS ON, THEN 14 DAYS OFF
     Route: 048
     Dates: start: 20181209, end: 2019
  13. PANTOPRAZOLE [Concomitant]
     Active Substance: PANTOPRAZOLE
     Indication: GASTROOESOPHAGEAL REFLUX DISEASE
  14. REMERON [Concomitant]
     Active Substance: MIRTAZAPINE
     Indication: APPETITE DISORDER

REACTIONS (17)
  - Dysphagia [Unknown]
  - Surgery [Unknown]
  - Dysstasia [Unknown]
  - Haemoglobin decreased [Unknown]
  - Bacterial infection [Recovered/Resolved]
  - Erythema [Unknown]
  - Cellulitis [Unknown]
  - Off label use [Not Recovered/Not Resolved]
  - Haematochezia [Recovered/Resolved]
  - White blood cell count decreased [Unknown]
  - Neutrophil count decreased [Unknown]
  - Viral infection [Recovered/Resolved]
  - Staphylococcal infection [Unknown]
  - Paronychia [Unknown]
  - Platelet count decreased [Unknown]
  - Gastrointestinal infection [Recovered/Resolved]
  - Infected dermal cyst [Unknown]

NARRATIVE: CASE EVENT DATE: 2018
